FAERS Safety Report 9592376 (Version 1)
Quarter: 2013Q3

REPORT INFORMATION
  Report Type: Spontaneous
  Country: US (occurrence: None)
  Receive Date: 20130920
  Receipt Date: 20130920
  Transmission Date: 20140515
  Serious: Yes (Disabling)
  Sender: FDA-Public Use
  Company Number: 1697953

PATIENT
  Age: 76 Year
  Sex: Female
  Weight: 66 kg

DRUGS (4)
  1. STERILE VANCOMYCIN HYDROCHLORIDE [Suspect]
     Indication: STAPHYLOCOCCAL INFECTION
     Dosage: (1 HOUR)
     Route: 042
     Dates: start: 20120828, end: 20120829
  2. ROCEPHIN [Concomitant]
  3. METOPROLOL [Concomitant]
  4. PROTONIX [Concomitant]

REACTIONS (2)
  - Tinnitus [None]
  - Deafness [None]
